FAERS Safety Report 25602202 (Version 1)
Quarter: 2025Q3

REPORT INFORMATION
  Report Type: Spontaneous
  Country: US (occurrence: US)
  Receive Date: 20250724
  Receipt Date: 20250724
  Transmission Date: 20251020
  Serious: No
  Sender: NOBELPHARMA
  Company Number: US-NPA-2025-AER-01240

PATIENT
  Sex: Female

DRUGS (1)
  1. HYFTOR [Suspect]
     Active Substance: SIROLIMUS
     Dosage: APPLY TO THE SKIN OF THE FACE AFFECTED WITH ANGIOFIBROMA TWICE DAILY
     Route: 050
     Dates: start: 20250419

REACTIONS (1)
  - Dry skin [Unknown]
